FAERS Safety Report 7082592-X (Version None)
Quarter: 2010Q3

REPORT INFORMATION
  Report Type: 
  Country: None (occurrence: None)
  Receive Date: 20100929
  Receipt Date: 20100628
  Transmission Date: 20110219
  Serious: No
  Sender: FDA-Public Use
  Company Number: US-WYE-H15922210

PATIENT
  Age: 55 Year
  Sex: Female
  Weight: 88.53 kg

DRUGS (5)
  1. PRISTIQ [Suspect]
     Indication: ANXIETY
     Dosage: 50 MG 1X PER 1 DAY
     Dates: start: 20100601
  2. PRISTIQ [Suspect]
     Indication: DEPRESSION
     Dosage: 50 MG 1X PER 1 DAY
     Dates: start: 20100601
  3. ATIVAN [Concomitant]
  4. ATENOLOL [Concomitant]
  5. MOBIC [Concomitant]

REACTIONS (10)
  - BURNING SENSATION [None]
  - CONTUSION [None]
  - DYSPHAGIA [None]
  - FLUSHING [None]
  - HYPERAESTHESIA [None]
  - NIGHT SWEATS [None]
  - OROPHARYNGEAL PAIN [None]
  - PAIN [None]
  - PAIN IN EXTREMITY [None]
  - PAIN OF SKIN [None]
